FAERS Safety Report 4950942-3 (Version None)
Quarter: 2006Q1

REPORT INFORMATION
  Report Type: 
  Country: None (occurrence: None)
  Receive Date: 20060201
  Receipt Date: 20051003
  Transmission Date: 20060701
  Serious: No
  Sender: FDA-Public Use
  Company Number: 2005PV002905

PATIENT
  Age: 60 Year
  Sex: Female
  Weight: 122.4712 kg

DRUGS (4)
  1. BYETTA [Suspect]
     Indication: DIABETES MELLITUS NON-INSULIN-DEPENDENT
     Dosage: 5 MCG BID SC
     Route: 058
     Dates: start: 20050929
  2. GLUCOVANCE [Concomitant]
  3. ACTOS [Concomitant]
  4. LANTUS [Concomitant]

REACTIONS (2)
  - INFLUENZA LIKE ILLNESS [None]
  - NAUSEA [None]
